FAERS Safety Report 19191373 (Version 2)
Quarter: 2021Q2

REPORT INFORMATION
  Report Type: Spontaneous
  Country: US (occurrence: US)
  Receive Date: 20210428
  Receipt Date: 20210629
  Transmission Date: 20210717
  Serious: Yes (Other)
  Sender: FDA-Public Use
  Company Number: NVSC2021US091963

PATIENT
  Sex: Female
  Weight: 1.35 kg

DRUGS (11)
  1. DOXORUBICIN [Suspect]
     Active Substance: DOXORUBICIN
     Indication: FOETAL EXPOSURE DURING PREGNANCY
     Dosage: MATERNAL DOSE: 50 MG/M2 OVER 24 HOURS ON DAY 4
     Route: 064
  2. CYTOXAN [Suspect]
     Active Substance: CYCLOPHOSPHAMIDE
     Indication: FOETAL EXPOSURE DURING PREGNANCY
     Dosage: MATERNAL DOSE: UNK
     Route: 064
  3. ACICLOVIR [Suspect]
     Active Substance: ACYCLOVIR
     Indication: FOETAL EXPOSURE DURING PREGNANCY
     Dosage: MATERNAL DOSE: UNK
     Route: 064
  4. MESNA. [Suspect]
     Active Substance: MESNA
     Indication: FOETAL EXPOSURE DURING PREGNANCY
     Dosage: MATERNAL DOSE: 450 MG/M2 DAYS 1?3
     Route: 064
  5. VINCRISTINE [Suspect]
     Active Substance: VINCRISTINE
     Dosage: MATERNAL DOSE: 2 MG ON DAY 4 AND DAY 11
     Route: 064
  6. ADRIAMYCIN [Suspect]
     Active Substance: DOXORUBICIN HYDROCHLORIDE
     Indication: FOETAL EXPOSURE DURING PREGNANCY
     Dosage: MATERNAL DOSE: UNK
     Route: 064
  7. DEXAMETHASONE. [Suspect]
     Active Substance: DEXAMETHASONE
     Indication: FOETAL EXPOSURE DURING PREGNANCY
     Dosage: MATERNAL DOSE: UNK
     Route: 064
  8. VINCRISTINE [Suspect]
     Active Substance: VINCRISTINE
     Indication: FOETAL EXPOSURE DURING PREGNANCY
     Dosage: MATERNAL DOSE: UNK
     Route: 064
  9. CYCLOPHOSPHAMIDE. [Suspect]
     Active Substance: CYCLOPHOSPHAMIDE
     Indication: FOETAL EXPOSURE DURING PREGNANCY
     Dosage: MATERNAL DOSE: 300 MG/M2 Q12H DAYS 1?3
     Route: 064
  10. DEXAMETHASONE. [Suspect]
     Active Substance: DEXAMETHASONE
     Dosage: MATERNAL DOSE: 40 MG DAYS 1?4 AND DAYS 11?14
     Route: 064
  11. DIFLUCAN [Suspect]
     Active Substance: FLUCONAZOLE
     Indication: FOETAL EXPOSURE DURING PREGNANCY
     Dosage: MATERNAL DOSE: UNK
     Route: 064

REACTIONS (4)
  - Foetal exposure during pregnancy [Unknown]
  - Neonatal respiratory distress [Unknown]
  - Premature baby [Unknown]
  - Low birth weight baby [Unknown]
